FAERS Safety Report 5015065-6 (Version None)
Quarter: 2006Q2

REPORT INFORMATION
  Report Type: 
  Country: None (occurrence: None)
  Receive Date: 20060426
  Receipt Date: 20060204
  Transmission Date: 20061013
  Serious: No
  Sender: FDA-Public Use
  Company Number: 219132

PATIENT
  Age: 57 Year
  Sex: Male

DRUGS (3)
  1. XOLAIR [Suspect]
     Indication: DRUG USE FOR UNKNOWN INDICATION
  2. ORAL STEROID (ORAL STEROID) [Concomitant]
  3. CORTICOSTEROID NOS (CORTICOSTEROID NOS) [Concomitant]

REACTIONS (1)
  - RASH [None]
